FAERS Safety Report 8919222 (Version 1)
Quarter: 2012Q4

REPORT INFORMATION
  Report Type: 
  Country: US (occurrence: US)
  Receive Date: 20121121
  Receipt Date: 20121121
  Transmission Date: 20130627
  Serious: Yes (Other)
  Sender: FDA-Public Use
  Company Number: US-BAYER-2012-121466

PATIENT
  Age: 54 Year
  Sex: Female

DRUGS (2)
  1. STIVARGA [Suspect]
     Indication: COLON CANCER
     Dosage: 160 mg, UNK
     Dates: start: 20121001
  2. STIVARGA [Suspect]
     Indication: COLON CANCER
     Dosage: 160 mg, UNK
     Dates: start: 20121112

REACTIONS (3)
  - Hypertensive crisis [None]
  - Asthenia [None]
  - Fall [None]
